FAERS Safety Report 17360248 (Version 1)
Quarter: 2020Q1

REPORT INFORMATION
  Report Type: Spontaneous
  Country: US (occurrence: US)
  Receive Date: 20200203
  Receipt Date: 20200203
  Transmission Date: 20200409
  Serious: Yes (Other)
  Sender: FDA-Public Use
  Company Number: US-BAYER-2020-017272

PATIENT
  Sex: Male

DRUGS (4)
  1. STOOL SOFTENER (DOCUSATE) [Concomitant]
     Active Substance: DOCUSATE
  2. MIRALAX [Suspect]
     Active Substance: POLYETHYLENE GLYCOL 3350
     Indication: CONSTIPATION
     Dosage: 3 DF, QD
     Dates: start: 20200129, end: 20200129
  3. MIRALAX [Suspect]
     Active Substance: POLYETHYLENE GLYCOL 3350
     Indication: CONSTIPATION
     Dosage: UNK
     Route: 048
     Dates: start: 20200127
  4. MIRALAX [Suspect]
     Active Substance: POLYETHYLENE GLYCOL 3350
     Indication: CONSTIPATION
     Dosage: UNK
     Dates: start: 2018

REACTIONS (5)
  - Prostate cancer [None]
  - Extra dose administered [Unknown]
  - Diarrhoea [Unknown]
  - Ureteral stent insertion [None]
  - Prostatic operation [None]

NARRATIVE: CASE EVENT DATE: 201910
